FAERS Safety Report 14502760 (Version 1)
Quarter: 2018Q1

REPORT INFORMATION
  Report Type: Spontaneous
  Country: US (occurrence: US)
  Receive Date: 20180208
  Receipt Date: 20180208
  Transmission Date: 20180509
  Serious: Yes (Other)
  Sender: FDA-Public Use
  Company Number: US-ASTRAZENECA-2018SE15140

PATIENT
  Sex: Female
  Weight: 37.4 kg

DRUGS (1)
  1. FASLODEX [Suspect]
     Active Substance: FULVESTRANT
     Indication: BREAST CANCER FEMALE
     Dosage: UNKNOWN
     Route: 030

REACTIONS (2)
  - Underweight [Unknown]
  - Malignant neoplasm progression [Unknown]
